FAERS Safety Report 9469810 (Version 1)
Quarter: 2013Q3

REPORT INFORMATION
  Report Type: Spontaneous
  Country: US (occurrence: US)
  Receive Date: 20130822
  Receipt Date: 20130822
  Transmission Date: 20140515
  Serious: Yes (Other)
  Sender: FDA-Public Use
  Company Number: US-JNJFOC-20130808393

PATIENT
  Sex: Female
  Weight: 54.43 kg

DRUGS (11)
  1. SANDOZ FENTANYL TRANSDERMAL SYSTEM [Suspect]
     Indication: PAIN
     Route: 062
     Dates: end: 201306
  2. SANDOZ FENTANYL TRANSDERMAL SYSTEM [Suspect]
     Indication: PAIN
     Route: 062
     Dates: start: 2011
  3. SANDOZ FENTANYL TRANSDERMAL SYSTEM [Suspect]
     Indication: PAIN
     Route: 062
     Dates: start: 201306
  4. SANDOZ FENTANYL TRANSDERMAL SYSTEM [Suspect]
     Indication: PAIN
     Route: 062
     Dates: start: 2010, end: 2011
  5. SANDOZ FENTANYL TRANSDERMAL SYSTEM [Suspect]
     Indication: PAIN
     Route: 062
     Dates: start: 2010, end: 2010
  6. NUCYNTA [Concomitant]
     Indication: BREAKTHROUGH PAIN
     Dosage: 7 TIMES DAILY AS NEEDED
     Route: 048
     Dates: start: 2010
  7. NUVARING [Concomitant]
     Indication: CONTRACEPTION
     Route: 067
     Dates: start: 2005
  8. VICODIN [Concomitant]
     Indication: BREAKTHROUGH PAIN
     Dosage: 10-325 MG/EVERY 6 HOURS/AS NEEDED
     Route: 048
     Dates: start: 2007, end: 2011
  9. SAVELLA [Concomitant]
     Indication: MEDICAL DIET
     Route: 048
     Dates: start: 2012, end: 2012
  10. AMANTADINE [Concomitant]
     Indication: NERVOUS SYSTEM DISORDER
     Route: 048
     Dates: start: 201301
  11. TIZANIDINE [Concomitant]
     Indication: MUSCLE RELAXANT THERAPY
     Route: 048
     Dates: start: 2010

REACTIONS (9)
  - Ataxia [Recovered/Resolved]
  - Depression [Not Recovered/Not Resolved]
  - Blood pressure decreased [Recovered/Resolved]
  - Wrong technique in drug usage process [Not Recovered/Not Resolved]
  - Dermatitis contact [Recovering/Resolving]
  - Wrong technique in drug usage process [Not Recovered/Not Resolved]
  - Product quality issue [Recovered/Resolved]
  - Pain [Not Recovered/Not Resolved]
  - Abnormal loss of weight [Not Recovered/Not Resolved]
